FAERS Safety Report 5306036-0 (Version None)
Quarter: 2007Q2

REPORT INFORMATION
  Report Type: 
  Country: None (occurrence: None)
  Receive Date: 20070416
  Receipt Date: 20070405
  Transmission Date: 20071010
  Serious: Yes (Other)
  Sender: FDA-Public Use
  Company Number: 2007BL001130

PATIENT
  Sex: Female

DRUGS (3)
  1. GENTAMICIN SULFATE [Suspect]
     Indication: DRUG USE FOR UNKNOWN INDICATION
  2. SANDIMMUNE [Suspect]
     Indication: APLASTIC ANAEMIA
  3. VANCOMYCIN [Concomitant]

REACTIONS (1)
  - DEAFNESS [None]
